FAERS Safety Report 4918098-0 (Version None)
Quarter: 2006Q1

REPORT INFORMATION
  Report Type: 
  Country: None (occurrence: None)
  Receive Date: 20060221
  Receipt Date: 20060216
  Transmission Date: 20060701
  Serious: Yes (Hospitalization)
  Sender: FDA-Public Use
  Company Number: DE-MERCK-0602DEU00102

PATIENT
  Age: 60 Year
  Sex: Female

DRUGS (2)
  1. HYZAAR [Suspect]
     Indication: HYPERTENSION
     Route: 048
     Dates: start: 20020101
  2. LEVOTHYROXINE SODIUM [Concomitant]
     Route: 048

REACTIONS (1)
  - THROMBOCYTHAEMIA [None]
